FAERS Safety Report 5699403-7 (Version None)
Quarter: 2008Q2

REPORT INFORMATION
  Report Type: 
  Country: None (occurrence: None)
  Receive Date: 20080404
  Receipt Date: 20080328
  Transmission Date: 20081010
  Serious: Yes (Death)
  Sender: FDA-Public Use
  Company Number: 163-21880-08010532

PATIENT
  Age: 76 Year
  Sex: Female

DRUGS (12)
  1. REVLIMID [Suspect]
     Indication: MULTIPLE MYELOMA
     Dosage: 25 MG, 1 IN 1 D, ORAL
     Route: 048
     Dates: start: 20070824, end: 20071217
  2. LOVENOX [Concomitant]
  3. AMBIEN [Concomitant]
  4. METOPROLOL (METOPROLOL) (UNKNOWN) [Concomitant]
  5. MIRTAZAPINE [Concomitant]
  6. ACYCLOVIR [Concomitant]
  7. MULTIVITAMIN (MULTIPLE VITAMINS) [Concomitant]
  8. FOLIC ACID [Concomitant]
  9. PROTONIX [Concomitant]
  10. ALPRAZOLAM [Concomitant]
  11. HYDROCODONE (HYDROCODONE) [Concomitant]
  12. FERROUS SULFATE TAB [Concomitant]

REACTIONS (6)
  - DEEP VEIN THROMBOSIS [None]
  - DISEASE PROGRESSION [None]
  - HAEMOGLOBIN DECREASED [None]
  - MULTIPLE MYELOMA [None]
  - NECK PAIN [None]
  - NEUTROPENIA [None]
